FAERS Safety Report 18715026 (Version 1)
Quarter: 2021Q1

REPORT INFORMATION
  Report Type: Spontaneous
  Country: KR (occurrence: KR)
  Receive Date: 20210108
  Receipt Date: 20210108
  Transmission Date: 20210419
  Serious: Yes (Other)
  Sender: FDA-Public Use
  Company Number: KR-JNJFOC-20210103206

PATIENT
  Age: 54 Year
  Sex: Female

DRUGS (1)
  1. DUROGESIC D?TRANS [Suspect]
     Active Substance: FENTANYL
     Indication: PRODUCT USED FOR UNKNOWN INDICATION
     Dosage: FOR 7 DAYS
     Route: 062

REACTIONS (3)
  - Drug diversion [Unknown]
  - Leukoencephalopathy [Recovered/Resolved]
  - Toxicity to various agents [Recovered/Resolved]
